FAERS Safety Report 9912606 (Version 1)
Quarter: 2014Q1

REPORT INFORMATION
  Report Type: Spontaneous
  Country: CA (occurrence: None)
  Receive Date: 20140214
  Receipt Date: 20140214
  Transmission Date: 20141002
  Serious: Yes (Death)
  Sender: FDA-Public Use
  Company Number: 2151932

PATIENT
  Sex: Male

DRUGS (1)
  1. EPINEPHRINE [Suspect]
     Indication: CARDIAC ARREST
     Dosage: NOT REPORTED, UNKNOWN, INTRAMEDULLAR (BONE MARROW)
     Route: 028
     Dates: start: 20140103

REACTIONS (1)
  - Syringe issue [None]
